FAERS Safety Report 24831198 (Version 6)
Quarter: 2025Q4

REPORT INFORMATION
  Report Type: Report from Study
  Country: US (occurrence: US)
  Receive Date: 20250110
  Receipt Date: 20251015
  Transmission Date: 20260118
  Serious: Yes (Other)
  Sender: MERCK SHARP & DOHME LLC
  Company Number: US-009507513-2412USA009354

PATIENT
  Sex: Female
  Weight: 58 kg

DRUGS (13)
  1. WINREVAIR [Suspect]
     Active Substance: SOTATERCEPT-CSRK
     Dosage: UNKNOWN
     Dates: start: 202506, end: 202506
  2. WINREVAIR [Suspect]
     Active Substance: SOTATERCEPT-CSRK
  3. WINREVAIR [Suspect]
     Active Substance: SOTATERCEPT-CSRK
  4. WINREVAIR [Suspect]
     Active Substance: SOTATERCEPT-CSRK
  5. WINREVAIR [Suspect]
     Active Substance: SOTATERCEPT-CSRK
     Indication: Pulmonary arterial hypertension
     Dosage: DOSE DESCRIPTION : 0.4 MILLILITER, Q3W, STRENGTH: 45 MG?DAILY DOSE : 0.019 MILLILITER?REGIMEN DOS...
     Route: 058
     Dates: start: 20241213, end: 202501
  6. WINREVAIR [Suspect]
     Active Substance: SOTATERCEPT-CSRK
  7. WINREVAIR [Suspect]
     Active Substance: SOTATERCEPT-CSRK
  8. WINREVAIR [Suspect]
     Active Substance: SOTATERCEPT-CSRK
  9. REMODULIN [Suspect]
     Active Substance: TREPROSTINIL
     Indication: Pulmonary arterial hypertension
     Dosage: DOSE DESCRIPTION : 0.02013 MICROGRAM PER KILOGRAM,CONTINUOUS VIA SUBCUTANEOUS (SQ) ROUTE; STRENGT...
     Route: 058
     Dates: start: 202406
  10. REMODULIN [Suspect]
     Active Substance: TREPROSTINIL
     Indication: Pulmonary arterial hypertension
     Dosage: DOSE DESCRIPTION : INFUSION RATE OF 36 UL/HR, CONTINUOUS VIA SQ ROUTE
     Route: 058
     Dates: start: 2024
  11. REMODULIN [Suspect]
     Active Substance: TREPROSTINIL
     Indication: Pulmonary arterial hypertension
     Dosage: DOSE DESCRIPTION : 0.03416  G/KG; STRENGTH: 5.0 MG/ML
     Route: 058
     Dates: start: 202405, end: 2024
  12. REMODULIN [Suspect]
     Active Substance: TREPROSTINIL
     Indication: Pulmonary arterial hypertension
     Dosage: DOSE DESCRIPTION : 0.03782  G/KG, CONTINUOUS VIA SQ ROUTE; STRENGTH: 5 MG/ML
     Route: 058
     Dates: start: 2024
  13. REMODULIN [Suspect]
     Active Substance: TREPROSTINIL
     Indication: Pulmonary arterial hypertension
     Dosage: DOSE DESCRIPTION: 0.3294 MICROGRAM PER KILOGRAM,CONTINUOUS; STRENGTH: 5.0MG/ML
     Route: 058
     Dates: start: 202406

REACTIONS (13)
  - Epistaxis [Not Recovered/Not Resolved]
  - General physical health deterioration [Unknown]
  - Inappropriate schedule of product administration [Unknown]
  - Somnolence [Unknown]
  - Product distribution issue [Unknown]
  - Lethargy [Unknown]
  - Fatigue [Not Recovered/Not Resolved]
  - Blood test abnormal [Recovered/Resolved]
  - Productive cough [Not Recovered/Not Resolved]
  - Painful respiration [Unknown]
  - Product dose omission issue [Unknown]
  - Product storage error [Unknown]
  - Frustration tolerance decreased [Unknown]

NARRATIVE: CASE EVENT DATE: 20240101
